FAERS Safety Report 25806441 (Version 1)
Quarter: 2025Q3

REPORT INFORMATION
  Report Type: Spontaneous
  Country: YE (occurrence: YE)
  Receive Date: 20250916
  Receipt Date: 20250916
  Transmission Date: 20251021
  Serious: Yes (Other)
  Sender: ZYDUS PHARM
  Company Number: YE-CADILA HEALTHCARE LIMITED-YE-ZYDUS-128475

PATIENT

DRUGS (1)
  1. DEXAMETHASONE [Suspect]
     Active Substance: DEXAMETHASONE
     Indication: Product used for unknown indication
     Route: 065

REACTIONS (3)
  - Adrenal insufficiency [Unknown]
  - Cushing^s syndrome [Unknown]
  - Intentional product misuse [Unknown]
